FAERS Safety Report 7795370-0 (Version None)
Quarter: 2011Q4

REPORT INFORMATION
  Report Type: 
  Country: None (occurrence: None)
  Receive Date: 20111004
  Receipt Date: 20110922
  Transmission Date: 20120403
  Serious: Yes (Hospitalization)
  Sender: FDA-Public Use
  Company Number: DE-ELI_LILLY_AND_COMPANY-DE201109006158

PATIENT
  Sex: Female

DRUGS (4)
  1. VITAMIN D [Concomitant]
  2. ANALGESICS [Concomitant]
  3. FORTEO [Suspect]
     Indication: OSTEOPOROSIS
     Dosage: UNK, QD
     Route: 058
     Dates: start: 20110614
  4. HYDROCHLOROTHIAZIDE [Concomitant]

REACTIONS (4)
  - SPINAL FRACTURE [None]
  - NERVE COMPRESSION [None]
  - OEDEMA PERIPHERAL [None]
  - FLUID RETENTION [None]
